FAERS Safety Report 25483073 (Version 1)
Quarter: 2025Q2

REPORT INFORMATION
  Report Type: Spontaneous
  Country: RU (occurrence: RU)
  Receive Date: 20250626
  Receipt Date: 20250626
  Transmission Date: 20250717
  Serious: Yes (Other)
  Sender: CHEPLAPHARM
  Company Number: RU-ASTRAZENECA-202506EAF017099RU

PATIENT
  Sex: Female

DRUGS (1)
  1. QUETIAPINE [Suspect]
     Active Substance: QUETIAPINE

REACTIONS (5)
  - Suicidal ideation [Unknown]
  - Depression [Unknown]
  - Condition aggravated [Unknown]
  - Feeling abnormal [Unknown]
  - Malaise [Unknown]
